FAERS Safety Report 4784308-6 (Version None)
Quarter: 2005Q3

REPORT INFORMATION
  Report Type: 
  Country: None (occurrence: None)
  Receive Date: 20050930
  Receipt Date: 20050922
  Transmission Date: 20060218
  Serious: Yes (Congenital Anomaly, Other)
  Sender: FDA-Public Use
  Company Number: 200518445GDDC

PATIENT
  Age: 20 Year
  Sex: Female
  Weight: 54.2 kg

DRUGS (4)
  1. INSULIN GLARGINE [Suspect]
     Indication: DIABETES MELLITUS INSULIN-DEPENDENT
     Route: 058
     Dates: start: 20040312
  2. NOVORAPID [Concomitant]
     Indication: DIABETES MELLITUS
     Dosage: DOSE: VARIABLE; DOSE UNIT: UNITS
     Route: 058
     Dates: start: 20040312
  3. VENTOLIN [Concomitant]
     Indication: ASTHMA
     Route: 055
     Dates: start: 20040828
  4. FOLIC ACID [Concomitant]
     Indication: PROPHYLAXIS OF NEURAL TUBE DEFECT
     Route: 048
     Dates: start: 20040910, end: 20041110

REACTIONS (8)
  - ABORTION SPONTANEOUS [None]
  - CONGENITAL ANOMALY [None]
  - DRUG EXPOSURE DURING PREGNANCY [None]
  - FACIAL DYSMORPHISM [None]
  - FINGER DEFORMITY [None]
  - INTRA-UTERINE DEATH [None]
  - LOW SET EARS [None]
  - SKIN FISSURES [None]
